FAERS Safety Report 7515646-1 (Version None)
Quarter: 2011Q2

REPORT INFORMATION
  Report Type: 
  Country: None (occurrence: None)
  Receive Date: 20110601
  Receipt Date: 20100721
  Transmission Date: 20111010
  Serious: No
  Sender: FDA-Public Use
  Company Number: US-PFIZER INC-2010092210

PATIENT
  Sex: Female
  Weight: 68 kg

DRUGS (5)
  1. CHANTIX [Suspect]
     Indication: SMOKING CESSATION THERAPY
     Dosage: 0.5 MG, 1X/DAY
     Route: 048
     Dates: start: 20100718
  2. BISMUTH SUBSALICYLATE [Suspect]
     Indication: ABDOMINAL PAIN UPPER
     Dosage: UNK
     Dates: start: 20100721
  3. BISMUTH SUBSALICYLATE [Suspect]
  4. CHANTIX [Suspect]
     Dosage: 0.5 MG, 2X/DAY
     Route: 048
     Dates: start: 20100721
  5. SPIRIVA [Concomitant]
     Indication: ASTHMA
     Dosage: UNK

REACTIONS (2)
  - ABDOMINAL PAIN UPPER [None]
  - SOMNOLENCE [None]
